FAERS Safety Report 9146977 (Version 1)
Quarter: 2013Q1

REPORT INFORMATION
  Report Type: Spontaneous
  Country: US (occurrence: None)
  Receive Date: 20130228
  Receipt Date: 20130228
  Transmission Date: 20140127
  Serious: No
  Sender: FDA-Public Use
  Company Number: None

PATIENT
  Age: 77 Year
  Sex: Male
  Weight: 121.56 kg

DRUGS (1)
  1. RAPAFLO [Suspect]
     Dosage: ONE CAPSULE DAILY ORAL
     Route: 048
     Dates: start: 20130128, end: 20130218

REACTIONS (1)
  - Drug ineffective [None]
